FAERS Safety Report 19216937 (Version 1)
Quarter: 2021Q2

REPORT INFORMATION
  Report Type: Spontaneous
  Country: US (occurrence: US)
  Receive Date: 20210505
  Receipt Date: 20210505
  Transmission Date: 20210717
  Serious: Yes (Hospitalization)
  Sender: FDA-Public Use
  Company Number: None

PATIENT
  Age: 70 Year
  Sex: Female
  Weight: 100.7 kg

DRUGS (11)
  1. ASCORBIC ACID. [Concomitant]
     Active Substance: ASCORBIC ACID
  2. LISINOPRIL AND HYDROCHLOROTHIAZIDE [Concomitant]
     Active Substance: HYDROCHLOROTHIAZIDE\LISINOPRIL
  3. ZINC SULFATE. [Concomitant]
     Active Substance: ZINC SULFATE
  4. CAPECITABINE. [Suspect]
     Active Substance: CAPECITABINE
     Indication: COLORECTAL CANCER
     Route: 048
     Dates: start: 20210201, end: 20210412
  5. IBUPROFEN. [Concomitant]
     Active Substance: IBUPROFEN
  6. MUCINEX DM MAXIMUM STRENGTH [Concomitant]
     Active Substance: DEXTROMETHORPHAN HYDROBROMIDE\GUAIFENESIN
  7. MULTIVITAMIN [Concomitant]
     Active Substance: VITAMINS
  8. AMLODIPINE BESYLATE. [Concomitant]
     Active Substance: AMLODIPINE BESYLATE
  9. ROSUVASTATIN CALCIUM. [Concomitant]
     Active Substance: ROSUVASTATIN CALCIUM
  10. TYLENOL [Concomitant]
     Active Substance: ACETAMINOPHEN
  11. NIACIN ER [Concomitant]
     Active Substance: NIACIN

REACTIONS (2)
  - Proctectomy [None]
  - Therapeutic procedure [None]

NARRATIVE: CASE EVENT DATE: 20210412
